FAERS Safety Report 6248988-0 (Version None)
Quarter: 2009Q2

REPORT INFORMATION
  Report Type: 
  Country: None (occurrence: None)
  Receive Date: 20090625
  Receipt Date: 20090615
  Transmission Date: 20091009
  Serious: Yes (Hospitalization)
  Sender: FDA-Public Use
  Company Number: AE-2009-091

PATIENT
  Age: 79 Year
  Sex: Male

DRUGS (6)
  1. FUROSEMIDE [Suspect]
  2. CARVEDILOL [Suspect]
  3. ASPIRIN [Suspect]
  4. SIMVASTATIN [Suspect]
  5. SPIRONOLACTONE [Concomitant]
  6. VALSARTAN [Suspect]

REACTIONS (2)
  - HYPOVOLAEMIA [None]
  - RENAL FAILURE [None]
